FAERS Safety Report 4932947-1 (Version None)
Quarter: 2006Q1

REPORT INFORMATION
  Report Type: 
  Country: None (occurrence: None)
  Receive Date: 20060306
  Receipt Date: 20060126
  Transmission Date: 20060701
  Serious: Yes (Life-Threatening, Other)
  Sender: FDA-Public Use
  Company Number: US-BRISTOL-MYERS SQUIBB COMPANY-13261748

PATIENT
  Age: 60 Year
  Sex: Male

DRUGS (8)
  1. DEFINITY [Suspect]
     Route: 042
     Dates: start: 20060126, end: 20060126
  2. LIPITOR [Concomitant]
  3. ASPIRIN [Concomitant]
  4. LISINOPRIL [Concomitant]
  5. HYDROCHLOROTHIAZIDE [Concomitant]
  6. MULTI-VITAMIN [Concomitant]
  7. CHROMIUM PICOLINATE [Concomitant]
  8. METOPROLOL [Concomitant]

REACTIONS (6)
  - CONFUSIONAL STATE [None]
  - DEPRESSED LEVEL OF CONSCIOUSNESS [None]
  - DIZZINESS [None]
  - HYPERHIDROSIS [None]
  - HYPOTENSION [None]
  - URTICARIA [None]
